FAERS Safety Report 4371864-5 (Version None)
Quarter: 2004Q2

REPORT INFORMATION
  Report Type: 
  Country: None (occurrence: None)
  Receive Date: 20040602
  Receipt Date: 20040519
  Transmission Date: 20050107
  Serious: Yes (Congenital Anomaly)
  Sender: FDA-Public Use
  Company Number: 2003-BP-09245BP

PATIENT
  Sex: Male
  Weight: 2.63 kg

DRUGS (12)
  1. VIRAMUNE [Suspect]
     Indication: HIV INFECTION
     Dosage: SEE IMAGE
     Route: 015
     Dates: start: 20030508, end: 20030521
  2. VIRAMUNE [Suspect]
     Indication: VERTICAL INFECTION TRANSMISSION
     Dosage: SEE IMAGE
     Route: 015
     Dates: start: 20030508, end: 20030521
  3. VIRAMUNE [Suspect]
     Indication: HIV INFECTION
     Dosage: SEE IMAGE
     Route: 015
     Dates: start: 20030522, end: 20030606
  4. VIRAMUNE [Suspect]
     Indication: VERTICAL INFECTION TRANSMISSION
     Dosage: SEE IMAGE
     Route: 015
     Dates: start: 20030522, end: 20030606
  5. COMBIVIR [Suspect]
     Indication: HIV INFECTION
     Dosage: SEE IMAGE
     Route: 015
     Dates: start: 20030508, end: 20030522
  6. COMBIVIR [Suspect]
     Indication: VERTICAL INFECTION TRANSMISSION
     Dosage: SEE IMAGE
     Route: 015
     Dates: start: 20030508, end: 20030522
  7. COMBIVIR [Suspect]
     Indication: HIV INFECTION
     Dosage: SEE IMAGE
     Route: 015
     Dates: start: 20030624, end: 20030926
  8. COMBIVIR [Suspect]
     Indication: VERTICAL INFECTION TRANSMISSION
     Dosage: SEE IMAGE
     Route: 015
     Dates: start: 20030624, end: 20030926
  9. VIRACEPT [Suspect]
     Indication: HIV INFECTION
     Dosage: 2500 MG, IU
     Route: 015
     Dates: start: 20030624, end: 20030927
  10. VIRACEPT [Suspect]
     Indication: VERTICAL INFECTION TRANSMISSION
     Dosage: 2500 MG, IU
     Route: 015
     Dates: start: 20030624, end: 20030927
  11. RETROVIR [Suspect]
     Indication: HIV INFECTION
     Dosage: SEE TEXT (SEE TEXT, 2 MG/KG, THEN 1 MG/KG), IU
     Route: 015
     Dates: start: 20030926, end: 20030926
  12. RETROVIR [Suspect]
     Indication: VERTICAL INFECTION TRANSMISSION
     Dosage: SEE TEXT (SEE TEXT, 2 MG/KG, THEN 1 MG/KG), IU
     Route: 015
     Dates: start: 20030926, end: 20030926

REACTIONS (3)
  - DRUG EXPOSURE DURING PREGNANCY [None]
  - PREMATURE BABY [None]
  - TRISOMY 21 [None]
